FAERS Safety Report 4490685-6 (Version None)
Quarter: 2004Q4

REPORT INFORMATION
  Report Type: 
  Country: None (occurrence: None)
  Receive Date: 20041102
  Receipt Date: 20041023
  Transmission Date: 20050328
  Serious: Yes (Death, Hospitalization, Other)
  Sender: FDA-Public Use
  Company Number: A01200405023

PATIENT
  Age: 76 Year
  Sex: Male

DRUGS (5)
  1. LITHIUM [Suspect]
     Indication: BIPOLAR DISORDER
     Route: 048
  2. CHLORPROMAZINE [Concomitant]
     Route: 048
  3. PROCYCLIDINE HYDROCHLORIDE 2MG TAB [Concomitant]
     Route: 065
  4. NITRAZEPAM [Concomitant]
     Route: 065
  5. ZOPICLONE [Concomitant]
     Route: 065

REACTIONS (16)
  - BLOOD CALCIUM INCREASED [None]
  - BLOOD CREATININE INCREASED [None]
  - BLOOD UREA INCREASED [None]
  - CLUBBING [None]
  - DEHYDRATION [None]
  - DEPRESSED LEVEL OF CONSCIOUSNESS [None]
  - GASTROINTESTINAL HAEMORRHAGE [None]
  - HYPERNATRAEMIA [None]
  - HYPOVENTILATION [None]
  - LUNG CONSOLIDATION [None]
  - MALAISE [None]
  - NEPHROGENIC DIABETES INSIPIDUS [None]
  - PNEUMONIA [None]
  - PO2 DECREASED [None]
  - RENAL FAILURE [None]
  - VOMITING [None]
